FAERS Safety Report 5836655-4 (Version None)
Quarter: 2008Q3

REPORT INFORMATION
  Report Type: 
  Country: None (occurrence: None)
  Receive Date: 20080807
  Receipt Date: 20080731
  Transmission Date: 20090109
  Serious: Yes (Death, Hospitalization)
  Sender: FDA-Public Use
  Company Number: IT-BAYER-200822295GPV

PATIENT
  Age: 83 Year
  Sex: Male

DRUGS (6)
  1. ASPIRIN [Suspect]
     Indication: PROPHYLAXIS
     Dosage: TOTAL DAILY DOSE: 100 MG  UNIT DOSE: 100 MG
     Route: 048
     Dates: start: 20070101, end: 20080614
  2. MEMANTINE HCL [Concomitant]
     Indication: DEMENTIA ALZHEIMER'S TYPE
     Dosage: TOTAL DAILY DOSE: 10 MG  UNIT DOSE: 10 MG
     Route: 048
     Dates: start: 20080101, end: 20080614
  3. PROCAPTAN [Concomitant]
     Indication: HYPERTENSION
     Dosage: TOTAL DAILY DOSE: 0.5 MG  UNIT DOSE: 0.5 MG
     Route: 048
     Dates: start: 20080101, end: 20080614
  4. SPIRIVA [Concomitant]
     Indication: EMPHYSEMA
     Route: 048
     Dates: start: 20080101, end: 20080614
  5. SYMBICORT [Concomitant]
     Indication: EMPHYSEMA
     Route: 048
     Dates: start: 20080101, end: 20080614
  6. VENTOLIN [Concomitant]
     Indication: EMPHYSEMA
     Route: 048
     Dates: start: 20080101, end: 20080614

REACTIONS (8)
  - CARDIOPULMONARY FAILURE [None]
  - CEREBRAL HAEMORRHAGE [None]
  - CONFUSIONAL STATE [None]
  - DYSPNOEA [None]
  - HAEMATURIA [None]
  - INCREASED BRONCHIAL SECRETION [None]
  - PNEUMONIA BACTERIAL [None]
  - PYREXIA [None]
